FAERS Safety Report 5873427-9 (Version None)
Quarter: 2008Q3

REPORT INFORMATION
  Report Type: 
  Country: None (occurrence: None)
  Receive Date: 20080908
  Receipt Date: 20080717
  Transmission Date: 20090109
  Serious: No
  Sender: FDA-Public Use
  Company Number: US-BAYER-200828993NA

PATIENT
  Age: 45 Year
  Sex: Female
  Weight: 60 kg

DRUGS (1)
  1. MIRENA [Suspect]
     Indication: CONTRACEPTION
     Route: 015
     Dates: start: 20080627

REACTIONS (6)
  - ABDOMINAL DISTENSION [None]
  - BREAST PAIN [None]
  - GENITAL HAEMORRHAGE [None]
  - HEADACHE [None]
  - NAUSEA [None]
  - VAGINAL HAEMORRHAGE [None]
